FAERS Safety Report 6667900-3 (Version None)
Quarter: 2010Q2

REPORT INFORMATION
  Report Type: 
  Country: None (occurrence: None)
  Receive Date: 20100401
  Receipt Date: 20100312
  Transmission Date: 20101027
  Serious: Yes (Disabling)
  Sender: FDA-Public Use
  Company Number: JP-SOLVAY-00310000630

PATIENT
  Age: 84 Year
  Sex: Female

DRUGS (5)
  1. LUVOX [Suspect]
     Indication: DEPRESSION
     Dosage: 1 DOSAGE FORM ORAL; SEE IMAGE
     Route: 048
     Dates: start: 20091003, end: 20091119
  2. ARICEPT [Suspect]
     Indication: DRUG USE FOR UNKNOWN INDICATION
     Dosage: 3 MILLIGRAM(S) ORAL
     Route: 048
     Dates: start: 20090916
  3. NORVASC [Concomitant]
  4. CANDESARTAN CILEXETIL [Concomitant]
  5. DOGMATYL (SULPIRIDE) [Concomitant]

REACTIONS (1)
  - CHONDROLYSIS [None]
